FAERS Safety Report 25585151 (Version 1)
Quarter: 2025Q3

REPORT INFORMATION
  Report Type: Other
  Country: CA (occurrence: CA)
  Receive Date: 20250721
  Receipt Date: 20250721
  Transmission Date: 20251020
  Serious: Yes (Death)
  Sender: ALVOGEN
  Company Number: CA-ALVOGEN-2025098365

PATIENT

DRUGS (1)
  1. FENTANYL [Suspect]
     Active Substance: FENTANYL
     Indication: Product used for unknown indication

REACTIONS (4)
  - Toxicity to various agents [Fatal]
  - Unresponsive to stimuli [Fatal]
  - Overdose [Fatal]
  - Prescription drug used without a prescription [Unknown]
